FAERS Safety Report 11300662 (Version 1)
Quarter: 2015Q3

REPORT INFORMATION
  Report Type: Spontaneous
  Country: US (occurrence: US)
  Receive Date: 20150722
  Receipt Date: 20150722
  Transmission Date: 20151125
  Serious: No
  Sender: FDA-Public Use
  Company Number: US-ELI_LILLY_AND_COMPANY-US201402001778

PATIENT
  Sex: Male

DRUGS (8)
  1. ASA [Concomitant]
     Active Substance: ASPIRIN
  2. VITAMIN C [Concomitant]
     Active Substance: ASCORBIC ACID
  3. SELENIUM [Concomitant]
     Active Substance: SELENIUM
  4. VITAMIN E [Concomitant]
     Active Substance: .ALPHA.-TOCOPHEROL
  5. COENZYME Q10 [Concomitant]
     Active Substance: UBIDECARENONE
  6. SIMVASTATIN. [Concomitant]
     Active Substance: SIMVASTATIN
  7. EFFIENT [Suspect]
     Active Substance: PRASUGREL HYDROCHLORIDE
     Indication: STENT PLACEMENT
     Dosage: 10 MG, QD
     Route: 048
     Dates: start: 20130123
  8. ALPHA LIPOIC ACID [Concomitant]
     Active Substance: .ALPHA.-LIPOIC ACID

REACTIONS (8)
  - Blister [Unknown]
  - Joint injury [Unknown]
  - Contusion [Unknown]
  - Epistaxis [Unknown]
  - Gastrooesophageal reflux disease [Unknown]
  - Gingival bleeding [Unknown]
  - Oedema peripheral [Unknown]
  - Road traffic accident [Unknown]

NARRATIVE: CASE EVENT DATE: 2013
